FAERS Safety Report 13618594 (Version 7)
Quarter: 2020Q1

REPORT INFORMATION
  Report Type: Report from Study
  Country: US (occurrence: US)
  Receive Date: 20170606
  Receipt Date: 20200211
  Transmission Date: 20200409
  Serious: Yes (Hospitalization)
  Sender: FDA-Public Use
  Company Number: US-009507513-1704USA006670

PATIENT
  Age: 66 Year
  Sex: Male
  Weight: 122.5 kg

DRUGS (18)
  1. PRINIVIL [Suspect]
     Active Substance: LISINOPRIL
     Indication: HYPERTENSION
     Dosage: 5 MILLIGRAM, QD
     Route: 048
     Dates: start: 200107, end: 20170406
  2. HUMALOG [Concomitant]
     Active Substance: INSULIN LISPRO
     Indication: TYPE 2 DIABETES MELLITUS
     Dosage: TOTAL DAILY DOSE: 120 INTERNATIONAL UNIT
     Dates: start: 200507, end: 20170521
  3. ASPIRIN. [Concomitant]
     Active Substance: ASPIRIN
     Indication: CORONARY ARTERY DISEASE
     Dosage: TOTAL DAILY DOSE: 325 MILLIGRAM
     Dates: start: 201307
  4. ATORVASTATIN [Concomitant]
     Active Substance: ATORVASTATIN
     Indication: HYPERLIPIDAEMIA
     Dosage: 40 MILLIGRAM, QD
     Route: 048
     Dates: start: 200107
  5. WARFARIN [Concomitant]
     Active Substance: WARFARIN
     Indication: CORONARY ARTERY DISEASE
     Dosage: TOTAL DAILY DOSE: 7.5 MILLIGRAM
     Dates: start: 201604, end: 20171031
  6. WARFARIN [Concomitant]
     Active Substance: WARFARIN
     Dosage: TOTAL DAILY DOSE: 5 MILLIGRAM
     Dates: start: 201604, end: 20171031
  7. CYANOCOBALAMIN. [Concomitant]
     Active Substance: CYANOCOBALAMIN
     Indication: ROUTINE HEALTH MAINTENANCE
     Dosage: TOTAL DAILY DOSE: 1000 MICROGRAM
     Dates: start: 20170209
  8. PLACEBO [Suspect]
     Active Substance: UNSPECIFIED INGREDIENT
     Indication: TYPE 2 DIABETES MELLITUS
     Dosage: UNK
     Route: 048
     Dates: start: 20170302, end: 20190923
  9. TORSEMIDE. [Concomitant]
     Active Substance: TORSEMIDE
     Indication: CARDIAC FAILURE CONGESTIVE
     Dosage: TOTAL DAILY DOSE: 40 MILLIGRAM
     Dates: start: 200807, end: 20171031
  10. TRULICITY [Concomitant]
     Active Substance: DULAGLUTIDE
     Indication: TYPE 2 DIABETES MELLITUS
     Dosage: 1.5 MILLIGRAM, QW
     Dates: start: 201610
  11. LANTUS [Concomitant]
     Active Substance: INSULIN GLARGINE
     Indication: TYPE 2 DIABETES MELLITUS
     Dosage: TOTAL DAILY DOSE: 120 INTERNATIONAL UNIT,
     Dates: start: 200007, end: 20170521
  12. LAMOTRIGINE. [Concomitant]
     Active Substance: LAMOTRIGINE
     Indication: BIPOLAR DISORDER
     Dosage: TOTAL DAILY DOSE: 200 MILLIGRAM
     Dates: start: 200707
  13. ERGOCALCIFEROL. [Concomitant]
     Active Substance: ERGOCALCIFEROL
     Indication: ROUTINE HEALTH MAINTENANCE
     Dosage: 50000 INTERNATIONAL UNIT, QW
     Route: 048
     Dates: start: 20170209
  14. ALLOPURINOL. [Concomitant]
     Active Substance: ALLOPURINOL
     Indication: GOUT
     Dosage: TOTAL DAILY DOSE: 300 MILLIGRAM
     Dates: start: 198707, end: 20171031
  15. LORATADINE. [Concomitant]
     Active Substance: LORATADINE
     Indication: SEASONAL ALLERGY
     Dosage: TOTAL DAILY DOSE: 10 MILLIGRAM, PRN
     Dates: start: 201007
  16. CARVEDILOL. [Concomitant]
     Active Substance: CARVEDILOL
     Indication: HYPERTENSION
     Dosage: TOTAL DAILY DOSE: 6.25 MILLIGRAM
     Dates: start: 201604
  17. METOLAZONE. [Concomitant]
     Active Substance: METOLAZONE
     Indication: HYPERTENSION
     Dosage: TOTAL DAILY DOSE: 2.5 MILLIGRAM, PRN
     Dates: start: 201207
  18. COLCHICINE. [Concomitant]
     Active Substance: COLCHICINE
     Indication: GOUT
     Dosage: 0TOTAL DAILY DOSE .6 MILLIGRAM, PRN
     Route: 048
     Dates: start: 201201

REACTIONS (4)
  - Angina pectoris [Recovered/Resolved]
  - Cellulitis [Recovered/Resolved]
  - Diabetic foot [Recovered/Resolved with Sequelae]
  - Gangrene [Recovered/Resolved with Sequelae]

NARRATIVE: CASE EVENT DATE: 20170305
